FAERS Safety Report 8304221-7 (Version None)
Quarter: 2012Q2

REPORT INFORMATION
  Report Type: 
  Country: None (occurrence: None)
  Receive Date: 20120423
  Receipt Date: 20120416
  Transmission Date: 20120825
  Serious: Yes (Other)
  Sender: FDA-Public Use
  Company Number: US-UCBSA-035053

PATIENT
  Age: 57 Year
  Sex: Female
  Weight: 124.73 kg

DRUGS (1)
  1. CIMZIA [Suspect]
     Indication: CROHN'S DISEASE
     Route: 058
     Dates: start: 20110512

REACTIONS (7)
  - FATIGUE [None]
  - ABDOMINAL PAIN [None]
  - PAIN [None]
  - CONTUSION [None]
  - INCORRECT DOSE ADMINISTERED [None]
  - PETECHIAE [None]
  - DIARRHOEA [None]
